FAERS Safety Report 6167110-2 (Version None)
Quarter: 2009Q2

REPORT INFORMATION
  Report Type: 
  Country: None (occurrence: None)
  Receive Date: 20090423
  Receipt Date: 20090423
  Transmission Date: 20091009
  Serious: Yes (Hospitalization)
  Sender: FDA-Public Use
  Company Number: None

PATIENT
  Age: 73 Year
  Sex: Male

DRUGS (1)
  1. AMPICILLIN AND SULBACTAM [Suspect]
     Indication: OSTEOMYELITIS
     Dosage: 3 GM TID IV
     Route: 042
     Dates: start: 20090407, end: 20090409

REACTIONS (1)
  - RASH [None]
